FAERS Safety Report 5425638-4 (Version None)
Quarter: 2007Q3

REPORT INFORMATION
  Report Type: 
  Country: None (occurrence: None)
  Receive Date: 20070824
  Receipt Date: 20070813
  Transmission Date: 20080115
  Serious: Yes (Death, Other)
  Sender: FDA-Public Use
  Company Number: GB-PFIZER INC-2007068115

PATIENT
  Age: 63 Year
  Sex: Male

DRUGS (6)
  1. VARENICLINE TABLETS [Suspect]
     Indication: SMOKING CESSATION THERAPY
     Route: 048
  2. CODEINE PHOSPHATE AND ACETAMINOPHEN [Concomitant]
     Route: 048
  3. GABAPENTIN [Concomitant]
     Route: 048
  4. PROPRANOLOL [Concomitant]
     Route: 048
  5. SALBUTAMOL [Concomitant]
     Route: 055
  6. SERETIDE [Concomitant]
     Route: 055

REACTIONS (1)
  - DEATH [None]
